FAERS Safety Report 9839661 (Version 2)
Quarter: 2014Q1

REPORT INFORMATION
  Report Type: Spontaneous
  Country: US (occurrence: US)
  Receive Date: 20140124
  Receipt Date: 20140326
  Transmission Date: 20141002
  Serious: Yes (Hospitalization)
  Sender: FDA-Public Use
  Company Number: US-BIOGENIDEC-2014BI005125

PATIENT
  Age: 44 Year
  Sex: Female

DRUGS (9)
  1. TECFIDERA [Suspect]
     Indication: MULTIPLE SCLEROSIS
     Route: 048
     Dates: start: 20131111
  2. ADDERALL [Concomitant]
  3. AMBIEN [Concomitant]
  4. DILAUDID [Concomitant]
  5. LORTAB [Concomitant]
  6. MEDROL (PAK) [Concomitant]
  7. MOBIC [Concomitant]
  8. SOLU-MEDROL [Concomitant]
  9. VALIUM [Concomitant]

REACTIONS (6)
  - Hypokalaemia [Recovered/Resolved]
  - Hypomagnesaemia [Recovered/Resolved]
  - Proteinuria [Recovered/Resolved]
  - Dehydration [Recovered/Resolved]
  - Pyrexia [Recovered/Resolved]
  - Migraine [Recovered/Resolved]
